FAERS Safety Report 23870403 (Version 4)
Quarter: 2025Q2

REPORT INFORMATION
  Report Type: Other
  Country: US (occurrence: US)
  Receive Date: 20240518
  Receipt Date: 20250407
  Transmission Date: 20250717
  Serious: No
  Sender: TRAVERE THERAPEUTICS
  Company Number: US-TRAVERE-2024TVT00446

PATIENT
  Age: 53 Year
  Sex: Male

DRUGS (12)
  1. FILSPARI [Suspect]
     Active Substance: SPARSENTAN
     Indication: IgA nephropathy
     Route: 048
     Dates: start: 202307
  2. FILSPARI [Suspect]
     Active Substance: SPARSENTAN
     Indication: Illness
     Route: 048
     Dates: start: 20230724, end: 202503
  3. TYLENOL [Concomitant]
     Active Substance: ACETAMINOPHEN
  4. FISH OIL [Concomitant]
     Active Substance: FISH OIL
  5. EXCEDRIN EXTRA STRENGTH [Concomitant]
     Active Substance: ACETAMINOPHEN\ASPIRIN\CAFFEINE
  6. SILDENAFIL CITRATE [Concomitant]
     Active Substance: SILDENAFIL CITRATE
  7. PENTOXIFYLLINE [Concomitant]
     Active Substance: PENTOXIFYLLINE
  8. VELTASSA [Concomitant]
     Active Substance: PATIROMER
  9. FUROSEMIDE [Concomitant]
     Active Substance: FUROSEMIDE
  10. TARPEYO [Concomitant]
     Active Substance: BUDESONIDE
  11. ALLOPURINOL [Concomitant]
     Active Substance: ALLOPURINOL
  12. SPIRONOLACTONE [Concomitant]
     Active Substance: SPIRONOLACTONE

REACTIONS (4)
  - Blood alkaline phosphatase increased [Unknown]
  - Hepatic enzyme increased [Unknown]
  - COVID-19 [Unknown]
  - Renal impairment [Unknown]
